FAERS Safety Report 23845367 (Version 9)
Quarter: 2024Q4

REPORT INFORMATION
  Report Type: Other
  Country: US (occurrence: US)
  Receive Date: 20240511
  Receipt Date: 20241106
  Transmission Date: 20250114
  Serious: Yes (Other)
  Sender: TRAVERE THERAPEUTICS
  Company Number: US-TRAVERE-2024TVT00338

PATIENT
  Age: 52 Year
  Sex: Female

DRUGS (9)
  1. FILSPARI [Suspect]
     Active Substance: SPARSENTAN
     Indication: IgA nephropathy
     Dosage: 200MG ORAL DAILY DAYS 1- 14
     Route: 048
     Dates: start: 20240309
  2. FILSPARI [Suspect]
     Active Substance: SPARSENTAN
     Indication: Haematuria
     Dosage: DAYS 15-30 400 MG DAILY
     Route: 048
     Dates: start: 20240323, end: 202407
  3. FILSPARI [Suspect]
     Active Substance: SPARSENTAN
     Dosage: EVERY OTHER DAY
     Route: 048
     Dates: start: 202410
  4. TARPEYO [Suspect]
     Active Substance: BUDESONIDE
     Indication: Product used for unknown indication
  5. SODIUM BICARBONATE [Concomitant]
     Active Substance: SODIUM BICARBONATE
  6. OMEGA 3 [Concomitant]
     Active Substance: CAPSAICIN
  7. FARXIGA [Concomitant]
     Active Substance: DAPAGLIFLOZIN PROPANEDIOL
  8. VITAMIN D3 [Concomitant]
     Active Substance: CHOLECALCIFEROL
  9. B COMPLEX WITH VITAMIN C [Concomitant]

REACTIONS (12)
  - Liver function test increased [None]
  - Inappropriate schedule of product administration [Unknown]
  - Carbon dioxide decreased [Unknown]
  - Glomerular filtration rate decreased [Unknown]
  - Gastrooesophageal reflux disease [Unknown]
  - Joint swelling [None]
  - Peripheral swelling [Unknown]
  - Arthralgia [Unknown]
  - Pain in extremity [Unknown]
  - Anaemia [Unknown]
  - Blood pressure increased [None]
  - Blood cholesterol increased [Unknown]

NARRATIVE: CASE EVENT DATE: 20240709
